FAERS Safety Report 24652563 (Version 1)
Quarter: 2024Q4

REPORT INFORMATION
  Report Type: Spontaneous
  Country: US (occurrence: US)
  Receive Date: 20241122
  Receipt Date: 20241122
  Transmission Date: 20250115
  Serious: No
  Sender: UNITED EXCHANGE
  Company Number: US-United Exchange Corporation-2165614

PATIENT
  Sex: Female

DRUGS (1)
  1. CVS MEDICATED HEAT [Suspect]
     Active Substance: CAPSICUM
     Indication: Pain
     Dates: start: 20240712, end: 20240712

REACTIONS (1)
  - Thermal burn [Unknown]

NARRATIVE: CASE EVENT DATE: 20240712
